FAERS Safety Report 6557499-4 (Version None)
Quarter: 2010Q1

REPORT INFORMATION
  Report Type: 
  Country: None (occurrence: None)
  Receive Date: 20100129
  Receipt Date: 20100119
  Transmission Date: 20100710
  Serious: Yes (Hospitalization)
  Sender: FDA-Public Use
  Company Number: PL-ROCHE-678937

PATIENT
  Sex: Male
  Weight: 64 kg

DRUGS (3)
  1. PEG-INTERFERON ALFA 2A (RO 25-8310) [Suspect]
     Indication: HEPATITIS C
     Dosage: FORM: PRE-FILLED SYRINGE (PER PROTOCOL)
     Route: 030
     Dates: start: 20090909, end: 20100106
  2. RIBAVIRIN [Suspect]
     Indication: HEPATITIS C
     Dosage: FORM AND FREQUENCY PER PROTOCOL
     Route: 048
     Dates: start: 20090909, end: 20100111
  3. BLINDED TMC435 [Suspect]
     Indication: HEPATITIS C
     Dosage: DOSE BLINDED
     Route: 048
     Dates: start: 20090909, end: 20100111

REACTIONS (1)
  - HAEMOPTYSIS [None]
